FAERS Safety Report 9825393 (Version 1)
Quarter: 2014Q1

REPORT INFORMATION
  Report Type: Spontaneous
  Country: US (occurrence: US)
  Receive Date: 20140117
  Receipt Date: 20140117
  Transmission Date: 20141002
  Serious: No
  Sender: FDA-Public Use
  Company Number: US-PFIZER INC-2014011918

PATIENT
  Age: 65 Year
  Sex: Male

DRUGS (1)
  1. GLIPIZIDE [Suspect]
     Dosage: 10 MG, 1X/DAY
     Route: 048
     Dates: start: 2011

REACTIONS (2)
  - Blood glucose increased [Unknown]
  - Product solubility abnormal [Unknown]
